FAERS Safety Report 8983208 (Version 1)
Quarter: 2012Q4

REPORT INFORMATION
  Report Type: 
  Country: US (occurrence: US)
  Receive Date: 20121212
  Receipt Date: 20121212
  Transmission Date: 20130627
  Serious: Yes (Other)
  Sender: FDA-Public Use
  Company Number: US-ASTELLAS-1116531

PATIENT
  Sex: Male

DRUGS (3)
  1. TARCEVA [Suspect]
     Indication: LUNG NEOPLASM MALIGNANT
     Route: 065
     Dates: start: 200501
  2. TARCEVA [Suspect]
     Indication: TRACHEAL CANCER
  3. TARCEVA [Suspect]
     Indication: BRONCHIAL CARCINOMA

REACTIONS (3)
  - Metastases to central nervous system [Unknown]
  - Rash [Unknown]
  - Diarrhoea [Unknown]
